FAERS Safety Report 8059911-0 (Version None)
Quarter: 2012Q1

REPORT INFORMATION
  Report Type: 
  Country: None (occurrence: None)
  Receive Date: 20120120
  Receipt Date: 20120118
  Transmission Date: 20120608
  Serious: Yes (Other)
  Sender: FDA-Public Use
  Company Number: US-PFIZER INC-2011274023

PATIENT
  Sex: Male

DRUGS (7)
  1. ACETYLSALICYLIC ACID [Concomitant]
     Dosage: UNK
  2. WARFARIN [Concomitant]
     Dosage: UNK
  3. LIPITOR [Suspect]
     Indication: BLOOD CHOLESTEROL
     Dosage: UNK
     Dates: end: 20110101
  4. MULTAQ [Suspect]
     Indication: ATRIAL FIBRILLATION
     Dosage: 400 MG, 2X/DAY
     Route: 048
     Dates: start: 20101001
  5. PLAVIX [Concomitant]
     Dosage: UNK
     Dates: end: 20110101
  6. METOPROLOL TARTRATE [Suspect]
     Dosage: 1/4 TABLET (12.5 MG), DAILY
     Route: 048
  7. FLECAINIDE [Concomitant]
     Dosage: UNK

REACTIONS (10)
  - MYALGIA [None]
  - ARTHRALGIA [None]
  - SYNCOPE [None]
  - ABDOMINAL TENDERNESS [None]
  - DIZZINESS [None]
  - ASTHENIA [None]
  - FATIGUE [None]
  - MUSCULOSKELETAL PAIN [None]
  - ATRIAL FIBRILLATION [None]
  - ABDOMINAL PAIN [None]
